FAERS Safety Report 10077650 (Version 2)
Quarter: 2014Q2

REPORT INFORMATION
  Report Type: Spontaneous
  Country: US (occurrence: US)
  Receive Date: 20140414
  Receipt Date: 20140414
  Transmission Date: 20141212
  Serious: No
  Sender: FDA-Public Use
  Company Number: US-BANPHARM-20142127

PATIENT
  Age: 54 Year
  Sex: Male
  Weight: 68.04 kg

DRUGS (4)
  1. ALEVE LIQUID GELS 220 MG [Suspect]
     Indication: PAIN
     Route: 048
  2. GENUINE BAYER ASPIRIN 325 MG [Concomitant]
  3. LYRICA [Concomitant]
  4. NORTRIPTYLINE [Concomitant]

REACTIONS (1)
  - Hypoaesthesia oral [Recovered/Resolved]
